FAERS Safety Report 5164038-1 (Version None)
Quarter: 2006Q4

REPORT INFORMATION
  Report Type: 
  Country: None (occurrence: None)
  Receive Date: 20061124
  Receipt Date: 20061109
  Transmission Date: 20070319
  Serious: Yes (Death)
  Sender: FDA-Public Use
  Company Number: 2006139867

PATIENT
  Age: 81 Year
  Sex: Female

DRUGS (1)
  1. GLYBURIDE [Suspect]
     Dosage: ORAL
     Route: 048
     Dates: start: 20050101

REACTIONS (10)
  - BLOOD GLUCOSE DECREASED [None]
  - BLOOD GLUCOSE INCREASED [None]
  - DEPRESSED LEVEL OF CONSCIOUSNESS [None]
  - DIARRHOEA [None]
  - DRUG INTERACTION [None]
  - INCORRECT DOSE ADMINISTERED [None]
  - INCORRECT ROUTE OF DRUG ADMINISTRATION [None]
  - MEDICATION ERROR [None]
  - PNEUMONIA [None]
  - WRONG DRUG ADMINISTERED [None]
